FAERS Safety Report 5335372-7 (Version None)
Quarter: 2007Q2

REPORT INFORMATION
  Report Type: 
  Country: None (occurrence: None)
  Receive Date: 20070525
  Receipt Date: 20070515
  Transmission Date: 20071010
  Serious: Yes (Hospitalization, Other)
  Sender: FDA-Public Use
  Company Number: US-PFIZER INC-2007039916

PATIENT
  Age: 29 Year
  Sex: Male

DRUGS (2)
  1. SOLU-MEDROL [Suspect]
  2. REBIF [Suspect]

REACTIONS (6)
  - DRY SKIN [None]
  - EYE SWELLING [None]
  - HYPERSENSITIVITY [None]
  - RASH MACULAR [None]
  - RASH PRURITIC [None]
  - SWELLING FACE [None]
